FAERS Safety Report 23515247 (Version 1)
Quarter: 2024Q1

REPORT INFORMATION
  Report Type: Spontaneous
  Country: KR (occurrence: None)
  Receive Date: 20240213
  Receipt Date: 20240213
  Transmission Date: 20240410
  Serious: Yes (Other)
  Sender: FDA-Public Use
  Company Number: 2024A030641

PATIENT
  Age: 52 Year
  Sex: Male

DRUGS (7)
  1. NEXIUM [Suspect]
     Active Substance: ESOMEPRAZOLE MAGNESIUM
     Route: 048
     Dates: start: 20200924, end: 20201119
  2. ALMAGATE [Suspect]
     Active Substance: ALMAGATE
     Dates: start: 20200924, end: 20201119
  3. LEVOSULPIRIDE [Suspect]
     Active Substance: LEVOSULPIRIDE
     Dates: start: 20200924, end: 20201119
  4. ECABET SODIUM [Suspect]
     Active Substance: ECABET SODIUM
     Dates: start: 20200924, end: 20201119
  5. URSODIOL [Suspect]
     Active Substance: URSODIOL
     Dates: start: 20200924, end: 20201119
  6. FENOFIBRIC ACID [Suspect]
     Active Substance: FENOFIBRIC ACID
     Dates: start: 20200924, end: 20201119
  7. ATORVASTATIN CALCIUM [Suspect]
     Active Substance: ATORVASTATIN CALCIUM
     Dates: start: 20200924, end: 20201119

REACTIONS (1)
  - Seizure [Recovered/Resolved]

NARRATIVE: CASE EVENT DATE: 20200924
